FAERS Safety Report 10081940 (Version 1)
Quarter: 2014Q2

REPORT INFORMATION
  Report Type: Spontaneous
  Country: GB (occurrence: GB)
  Receive Date: 20140416
  Receipt Date: 20140416
  Transmission Date: 20141212
  Serious: Yes (Death)
  Sender: FDA-Public Use
  Company Number: GB-GLAXOSMITHKLINE-B0985746A

PATIENT
  Sex: 0

DRUGS (2)
  1. SALMETEROL [Suspect]
     Indication: PRODUCT USED FOR UNKNOWN INDICATION
     Route: 065
  2. VENTOLIN INHALER [Concomitant]

REACTIONS (2)
  - Asthma [Fatal]
  - Wrong drug administered [Fatal]
